FAERS Safety Report 6246279-5 (Version None)
Quarter: 2009Q2

REPORT INFORMATION
  Report Type: 
  Country: None (occurrence: None)
  Receive Date: 20090626
  Receipt Date: 20090615
  Transmission Date: 20091009
  Serious: Yes (Other)
  Sender: FDA-Public Use
  Company Number: PHEH2009US06204

PATIENT
  Sex: Female

DRUGS (2)
  1. GENTEAL MILD LUBRICANT EYE DROPS (NVO) [Suspect]
  2. LUMIGAN [Suspect]

REACTIONS (5)
  - DIABETES MELLITUS [None]
  - EYE IRRITATION [None]
  - EYE PAIN [None]
  - GLAUCOMA [None]
  - RETINOPATHY [None]
